FAERS Safety Report 5995337-9 (Version None)
Quarter: 2008Q4

REPORT INFORMATION
  Report Type: 
  Country: None (occurrence: None)
  Receive Date: 20081212
  Receipt Date: 20080929
  Transmission Date: 20090506
  Serious: No
  Sender: FDA-Public Use
  Company Number: US-ABBOTT-08P-163-0478659-00

PATIENT
  Sex: Male
  Weight: 85.806 kg

DRUGS (12)
  1. HUMIRA [Suspect]
     Indication: CROHN'S DISEASE
     Route: 058
     Dates: start: 20080703
  2. PREDNISONE TAB [Concomitant]
     Indication: CROHN'S DISEASE
     Route: 048
     Dates: start: 20070704
  3. LIBRAX [Concomitant]
     Indication: CROHN'S DISEASE
     Route: 048
  4. LOMOTIL [Concomitant]
     Indication: CROHN'S DISEASE
     Route: 048
  5. CYANOCOBALAMIN-TANNIN COMPLEX [Concomitant]
     Indication: VITAMIN SUPPLEMENTATION
     Route: 030
  6. GLIPIZIDE [Concomitant]
     Indication: DIABETES MELLITUS
     Route: 048
     Dates: start: 20060101
  7. GEMFIBROZIL [Concomitant]
     Indication: BLOOD TRIGLYCERIDES
     Route: 048
     Dates: start: 20050101
  8. LISINOPRIL [Concomitant]
     Indication: BLOOD PRESSURE
     Route: 048
     Dates: start: 20050101
  9. MIRTAZAPINE [Concomitant]
     Indication: DEPRESSION
     Dosage: 30 MILLIGRAMS AM 15 MILLIGRAMS AT NIGHT
     Route: 048
     Dates: start: 20060101
  10. ARIPIPRAZOLE [Concomitant]
     Indication: DEPRESSION
     Route: 048
     Dates: start: 20060101
  11. TIMOLOL [Concomitant]
     Indication: BORDERLINE GLAUCOMA
     Dosage: 0.5%
     Dates: start: 20080401
  12. OMEPRAZOLE [Concomitant]
     Indication: GASTRIC DISORDER
     Route: 048
     Dates: start: 20070101

REACTIONS (4)
  - ABDOMINAL PAIN [None]
  - DIARRHOEA [None]
  - DRUG INEFFECTIVE [None]
  - FLATULENCE [None]
